FAERS Safety Report 9276407 (Version 1)
Quarter: 2012Q4

REPORT INFORMATION
  Report Type: Spontaneous
  Country: JP (occurrence: None)
  Receive Date: 20121109
  Receipt Date: 20121109
  Transmission Date: 20130627
  Serious: Yes (Life-Threatening)
  Sender: FDA-Public Use
  Company Number: 2012S1000311

PATIENT
  Age: 70 Year
  Sex: Male
  Weight: 84 kg

DRUGS (14)
  1. CUBICIN (DAPTOMYCIN) [Suspect]
     Indication: DEVICE RELATED INFECTION
     Route: 042
     Dates: start: 20120329, end: 20120329
  2. MUCODYNE [Concomitant]
  3. CEFTRIAXONE [Concomitant]
  4. ZOSYN [Concomitant]
  5. ATELEC [Concomitant]
  6. FUROSEMIDE [Concomitant]
  7. CALCIUM CARBONATE [Concomitant]
  8. AMBROXOL [Concomitant]
  9. TAKEPRON [Concomitant]
  10. URSODEOXYCHOLIC ACID [Concomitant]
  11. WARFARIN [Concomitant]
  12. ASPIRIN [Concomitant]
  13. KREMEZIN [Concomitant]
  14. CLARITH [Concomitant]

REACTIONS (1)
  - Anaphylactic shock [None]
